FAERS Safety Report 9916436 (Version 2)
Quarter: 2014Q2

REPORT INFORMATION
  Report Type: Spontaneous
  Country: US (occurrence: US)
  Receive Date: 20140221
  Receipt Date: 20140410
  Transmission Date: 20141212
  Serious: No
  Sender: FDA-Public Use
  Company Number: US-BAYER-2014-023622

PATIENT
  Age: 69 Year
  Sex: Male

DRUGS (5)
  1. LEVITRA [Suspect]
  2. EDEX [Suspect]
     Indication: PRODUCT USED FOR UNKNOWN INDICATION
     Dosage: 10 UNK, UNK
     Route: 042
     Dates: start: 20140117, end: 20140117
  3. ATENOLOL [Concomitant]
     Indication: HYPERTENSION
  4. ASA [Concomitant]
  5. ATORVASTATIN [Concomitant]
     Indication: BLOOD CHOLESTEROL INCREASED

REACTIONS (1)
  - Drug effect decreased [None]
